FAERS Safety Report 8615015-7 (Version None)
Quarter: 2012Q3

REPORT INFORMATION
  Report Type: 
  Country: None (occurrence: None)
  Receive Date: 20120815
  Receipt Date: 20120815
  Transmission Date: 20120928
  Serious: Yes (Other)
  Sender: FDA-Public Use
  Company Number: None

PATIENT
  Sex: Male
  Weight: 12.7 kg

DRUGS (2)
  1. KEPPRA [Suspect]
     Indication: INFANTILE SPASMS
     Dosage: 2ML BID PO
     Route: 048
  2. KEPPRA [Suspect]
     Indication: TUBEROUS SCLEROSIS
     Dosage: 2ML BID PO
     Route: 048

REACTIONS (2)
  - CONVULSION [None]
  - PRODUCT SUBSTITUTION ISSUE [None]
